FAERS Safety Report 7746337-X (Version None)
Quarter: 2011Q3

REPORT INFORMATION
  Report Type: 
  Country: None (occurrence: None)
  Receive Date: 20110913
  Receipt Date: 20110908
  Transmission Date: 20111222
  Serious: Yes (Other)
  Sender: FDA-Public Use
  Company Number: CH-ROCHE-800317

PATIENT
  Age: 60 Year
  Sex: Female

DRUGS (1)
  1. BONIVA [Suspect]
     Indication: OSTEOPOROSIS
     Route: 042
     Dates: start: 20110831

REACTIONS (4)
  - INJECTION SITE NECROSIS [None]
  - INJECTION SITE REACTION [None]
  - MUSCULOSKELETAL PAIN [None]
  - DRUG ADMINISTRATION ERROR [None]
